FAERS Safety Report 6814924-9 (Version None)
Quarter: 2010Q3

REPORT INFORMATION
  Report Type: 
  Country: None (occurrence: None)
  Receive Date: 20100701
  Receipt Date: 20100701
  Transmission Date: 20110219
  Serious: Yes (Hospitalization)
  Sender: FDA-Public Use
  Company Number: None

PATIENT
  Age: 80 Year
  Sex: Female
  Weight: 68.9467 kg

DRUGS (4)
  1. EVISTA [Suspect]
     Indication: BREAST CANCER
     Dosage: 60 MG ONE A DAY ORAL
     Route: 048
     Dates: start: 20100403, end: 20100405
  2. EVISTA [Suspect]
     Indication: PROPHYLAXIS
     Dosage: 60 MG ONE A DAY ORAL
     Route: 048
     Dates: start: 20100403, end: 20100405
  3. EVISTA [Suspect]
     Indication: BREAST CANCER
     Dosage: 60 MG ONE A DAY ORAL
     Route: 048
     Dates: start: 20100518, end: 20100521
  4. EVISTA [Suspect]
     Indication: PROPHYLAXIS
     Dosage: 60 MG ONE A DAY ORAL
     Route: 048
     Dates: start: 20100518, end: 20100521

REACTIONS (1)
  - CEREBROVASCULAR ACCIDENT [None]
